FAERS Safety Report 8392553-6 (Version None)
Quarter: 2012Q2

REPORT INFORMATION
  Report Type: 
  Country: None (occurrence: None)
  Receive Date: 20120529
  Receipt Date: 20120522
  Transmission Date: 20120825
  Serious: Yes (Death, Life-Threatening)
  Sender: FDA-Public Use
  Company Number: FR-MERCK-1202USA03639

PATIENT
  Age: 68 Year
  Sex: Female

DRUGS (15)
  1. VANCOMYCIN [Suspect]
     Route: 065
     Dates: start: 20120105
  2. ZYVOX [Suspect]
     Route: 065
     Dates: start: 20111230
  3. METOCLOPRAMIDE [Concomitant]
     Route: 065
  4. NOXAFIL [Concomitant]
     Route: 065
  5. TAZOBACTAM [Suspect]
     Route: 065
     Dates: start: 20111228, end: 20120104
  6. HYDREA [Suspect]
     Route: 065
     Dates: start: 20111226, end: 20111228
  7. IDARUBICIN HCL [Suspect]
     Indication: ACUTE LEUKAEMIA
     Route: 065
     Dates: start: 20111228, end: 20120103
  8. VALACYCLOVIR HYDROCHLORIDE [Suspect]
     Route: 065
     Dates: start: 20111228
  9. ZOFRAN [Concomitant]
     Route: 065
  10. AMIODARONE HCL [Suspect]
     Route: 042
     Dates: start: 20111230
  11. XYZAL [Concomitant]
     Route: 065
  12. EMEND [Suspect]
     Route: 048
     Dates: start: 20111229
  13. LEVOFLOXACIN [Suspect]
     Route: 065
     Dates: start: 20111229
  14. FASTURTEC [Suspect]
     Route: 065
     Dates: start: 20111228
  15. CYTARABINE [Suspect]
     Indication: ACUTE LEUKAEMIA
     Route: 042
     Dates: start: 20111228, end: 20120103

REACTIONS (6)
  - RENAL FAILURE ACUTE [None]
  - APLASIA [None]
  - GASTROINTESTINAL NECROSIS [None]
  - DERMATITIS BULLOUS [None]
  - SEPTIC SHOCK [None]
  - INTESTINAL ISCHAEMIA [None]
